FAERS Safety Report 6107878-4 (Version None)
Quarter: 2009Q1

REPORT INFORMATION
  Report Type: 
  Country: None (occurrence: None)
  Receive Date: 20090305
  Receipt Date: 20090305
  Transmission Date: 20090719
  Serious: Yes (Other)
  Sender: FDA-Public Use
  Company Number: None

PATIENT
  Age: 52 Year
  Sex: Female
  Weight: 90.7194 kg

DRUGS (2)
  1. PRISTIQ [Suspect]
     Indication: DEPRESSION
     Dosage: 50 MG 1 PER DAY PO
     Route: 048
     Dates: start: 20090227, end: 20090309
  2. EFFEXOR [Suspect]
     Indication: DEPRESSION
     Dosage: 150 MG 1 PER DAY PO
     Route: 048
     Dates: start: 20090212, end: 20090227

REACTIONS (7)
  - CHILLS [None]
  - DIZZINESS [None]
  - HEADACHE [None]
  - HYPERHIDROSIS [None]
  - INSOMNIA [None]
  - NAUSEA [None]
  - VISION BLURRED [None]
